FAERS Safety Report 21498391 (Version 6)
Quarter: 2023Q1

REPORT INFORMATION
  Report Type: Report from Study
  Country: US (occurrence: US)
  Receive Date: 20221024
  Receipt Date: 20230330
  Transmission Date: 20230417
  Serious: Yes (Hospitalization)
  Sender: FDA-Public Use
  Company Number: US-002147023-NVSC2022US238443

PATIENT
  Age: 75 Year
  Sex: Female
  Weight: 45.359 kg

DRUGS (1)
  1. ENTRESTO [Suspect]
     Active Substance: SACUBITRIL\VALSARTAN
     Indication: Product used for unknown indication
     Dosage: 0.5 DOSAGE FORM, BID ( 1/2 TABLET IN THE MORNING AND 1/2 TABLET IN THE EVENING)
     Route: 048
     Dates: start: 20221014

REACTIONS (5)
  - Pneumonia [Unknown]
  - Nasal congestion [Unknown]
  - Cough [Unknown]
  - Prescribed underdose [Unknown]
  - Wrong technique in product usage process [Unknown]

NARRATIVE: CASE EVENT DATE: 20221014
